FAERS Safety Report 11680470 (Version 3)
Quarter: 2015Q4

REPORT INFORMATION
  Report Type: Spontaneous
  Country: US (occurrence: US)
  Receive Date: 20151027
  Receipt Date: 20151110
  Transmission Date: 20160304
  Serious: No
  Sender: FDA-Public Use
  Company Number: US-ELI_LILLY_AND_COMPANY-US201010000079

PATIENT
  Age: 70 Year
  Sex: Female

DRUGS (4)
  1. FORTEO [Suspect]
     Active Substance: TERIPARATIDE
     Dosage: 20 UG, QD (1/D)
  2. FORTEO [Suspect]
     Active Substance: TERIPARATIDE
     Indication: OSTEOPOROSIS
     Dosage: 20 UG, DAILY (1/D)
     Dates: start: 20100911, end: 20100929
  3. FORTEO [Suspect]
     Active Substance: TERIPARATIDE
     Dosage: 20 UG, DAILY (1/D)
  4. FORTEO [Suspect]
     Active Substance: TERIPARATIDE
     Dosage: 20 UG, QD (1/D)

REACTIONS (9)
  - Head discomfort [Unknown]
  - Pain [Unknown]
  - Arthralgia [Unknown]
  - Blood glucose increased [Unknown]
  - Pain in extremity [Not Recovered/Not Resolved]
  - Drug dose omission [Recovered/Resolved]
  - Injection site bruising [Unknown]
  - Groin pain [Unknown]
  - Blindness [Unknown]

NARRATIVE: CASE EVENT DATE: 20100918
